FAERS Safety Report 6332599-2 (Version None)
Quarter: 2009Q3

REPORT INFORMATION
  Report Type: 
  Country: None (occurrence: None)
  Receive Date: 20090828
  Receipt Date: 20090820
  Transmission Date: 20100115
  Serious: Yes (Other)
  Sender: FDA-Public Use
  Company Number: US-ROCHE-624534

PATIENT
  Sex: Female
  Weight: 67.6 kg

DRUGS (6)
  1. BONIVA [Suspect]
     Indication: OSTEOPOROSIS
     Route: 048
     Dates: start: 20090219, end: 20090605
  2. CELEBREX [Concomitant]
     Route: 048
     Dates: start: 20060925
  3. ESTRADIOL [Concomitant]
     Dosage: DOSE: 1/2 APPLICATION, FREQUENCY: 2-3 EVERY WEEK.
     Route: 067
     Dates: start: 20071102
  4. VITAMINE D [Concomitant]
     Indication: VITAMIN D DEFICIENCY
     Dosage: ROUTE: ORAL
     Dates: start: 20090318, end: 20090605
  5. VITAMINE D [Concomitant]
     Dates: start: 20090605
  6. CALTRATE [Concomitant]
     Indication: OSTEOPOROSIS
     Route: 048
     Dates: start: 20090605

REACTIONS (3)
  - DYSPEPSIA [None]
  - NAUSEA [None]
  - PAIN IN JAW [None]
